FAERS Safety Report 7898593-5 (Version None)
Quarter: 2011Q4

REPORT INFORMATION
  Report Type: 
  Country: None (occurrence: None)
  Receive Date: 20111107
  Receipt Date: 20111103
  Transmission Date: 20120403
  Serious: Yes (Hospitalization, Other)
  Sender: FDA-Public Use
  Company Number: US-BAYER-2011-033339

PATIENT
  Age: 39 Year
  Sex: Female

DRUGS (4)
  1. INTERFERON BETA-1B [Suspect]
     Dosage: 8 MIU, QOD
     Dates: start: 20110427
  2. IBUPROFEN [Concomitant]
     Dosage: UNKNOWN
  3. CORTICOSTEROIDS [Concomitant]
     Route: 048
  4. INTERFERON BETA-1B [Suspect]
     Indication: MULTIPLE SCLEROSIS
     Dosage: 2 MIU, QOD
     Route: 058
     Dates: start: 20110403, end: 20110414

REACTIONS (7)
  - INJECTION SITE REACTION [None]
  - MULTIPLE SCLEROSIS [None]
  - BALANCE DISORDER [None]
  - EYE PAIN [None]
  - MUSCULOSKELETAL DISORDER [None]
  - ABDOMINAL PAIN UPPER [None]
  - VISUAL IMPAIRMENT [None]
